FAERS Safety Report 25328922 (Version 1)
Quarter: 2025Q2

REPORT INFORMATION
  Report Type: Spontaneous
  Country: US (occurrence: US)
  Receive Date: 20250519
  Receipt Date: 20250519
  Transmission Date: 20250716
  Serious: Yes (Other)
  Sender: NOVO NORDISK
  Company Number: US-NOVOPROD-1427943

PATIENT
  Age: 62 Year
  Weight: 73.469 kg

DRUGS (1)
  1. SEMAGLUTIDE [Suspect]
     Active Substance: SEMAGLUTIDE
     Indication: Product used for unknown indication

REACTIONS (5)
  - Faecaloma [Unknown]
  - Tremor [Unknown]
  - Hyperhidrosis [Unknown]
  - Constipation [Unknown]
  - Gastrointestinal pain [Unknown]
